FAERS Safety Report 5823703-0 (Version None)
Quarter: 2008Q3

REPORT INFORMATION
  Report Type: 
  Country: None (occurrence: None)
  Receive Date: 20080725
  Receipt Date: 20080716
  Transmission Date: 20090109
  Serious: Yes (Other)
  Sender: FDA-Public Use
  Company Number: US-ABBOTT-08P-163-0463955-00

PATIENT
  Sex: Female
  Weight: 77.18 kg

DRUGS (3)
  1. HUMIRA [Suspect]
     Indication: RHEUMATOID ARTHRITIS
     Route: 058
     Dates: start: 20060101
  2. PREDNISONE TAB [Concomitant]
     Indication: RHEUMATOID ARTHRITIS
     Dosage: 1 - 5MG TABLET ONCE A DAY
     Route: 048
     Dates: start: 20030101
  3. HYDROXYCHLOROQUINE SULFATE [Concomitant]
     Indication: RHEUMATOID ARTHRITIS
     Dosage: 2 - 200MG TABLETS ONCE A DAY
     Route: 048
     Dates: start: 20040101

REACTIONS (3)
  - LIPOMA [None]
  - NODULE ON EXTREMITY [None]
  - PROCEDURAL PAIN [None]
